FAERS Safety Report 13088112 (Version 1)
Quarter: 2017Q1

REPORT INFORMATION
  Report Type: Spontaneous
  Country: US (occurrence: US)
  Receive Date: 20170104
  Receipt Date: 20170104
  Transmission Date: 20170428
  Serious: Yes (Other)
  Sender: FDA-Public Use
  Company Number: None

PATIENT
  Age: 40 Year
  Sex: Female

DRUGS (2)
  1. VENOFER [Suspect]
     Active Substance: IRON SUCROSE
     Indication: ANAEMIA
     Dosage: ?          OTHER FREQUENCY:WEEKLY;?INTRAVENOUS (NOT OTHERWISE SPECIFIED) ? ?
     Route: 042
     Dates: start: 20151022, end: 20170103
  2. VENOFER [Suspect]
     Active Substance: IRON SUCROSE
     Indication: IRON DEFICIENCY
     Dosage: ?          OTHER FREQUENCY:WEEKLY;?INTRAVENOUS (NOT OTHERWISE SPECIFIED) ? ?
     Route: 042
     Dates: start: 20151022, end: 20170103

REACTIONS (5)
  - Malaise [None]
  - Swelling [None]
  - Nausea [None]
  - Burning sensation [None]
  - Paraesthesia [None]

NARRATIVE: CASE EVENT DATE: 20170103
